FAERS Safety Report 8791308 (Version 1)
Quarter: 2012Q4

REPORT INFORMATION
  Report Type: Spontaneous
  Country: US (occurrence: None)
  Receive Date: 20120906
  Receipt Date: 20120906
  Transmission Date: 20130627
  Serious: Yes (Hospitalization)
  Sender: FDA-Public Use
  Company Number: 2012032831

PATIENT
  Sex: Female
  Weight: 58.51 kg

DRUGS (27)
  1. HIZENTRA [Suspect]
     Indication: IMMUNODEFICIENCY COMMON VARIABLE
     Dosage: 13 g 1x/week, 2nd and 3rd week of hospitalization.
  2. HIZENTRA [Suspect]
     Indication: IMMUNODEFICIENCY COMMON VARIABLE
     Dosage: 1x/week, 2nd and 3rd week of hospitalization. Jun-2012 Subcutaneous)
     Dates: start: 20120808, end: 20120828
  3. HIZENTRA [Suspect]
     Indication: IMMUNODEFICIENCY COMMON VARIABLE
     Dosage: 10 g 1x/week, (50 ml) 1-2 hours in 1-4 sites Subcutaneous)
     Dates: start: 20120828, end: 20120828
  4. PRIVIGEN [Suspect]
     Indication: IMMUNODEFICIENCY COMMON VARIABLE
     Dosage: Week 1 and week 4 of Hospitalization (Jun-2012) Intravenous (not otherwise specified))
  5. ANTIBIOTICS (ANTIBIOTICS) [Concomitant]
  6. VORICONAZOLE (VORICONAZOLE) [Concomitant]
  7. LEVAQUIN (LEVOFLOXACIN) [Concomitant]
  8. PREDNISONE (PREDNISONE) [Concomitant]
  9. ACETAMINOPHEN (PARACETAMOL),ACETYLSAL ACID,CAFFEINE CITRATE [Concomitant]
  10. DIPHENHYDRAMINE (DIPHENHYDRAMINE) [Concomitant]
  11. EPI-PEN (EPINEPHRINE HYDROCHLORIDE) [Concomitant]
  12. LMX (LIDOCAINE) [Concomitant]
  13. PANTOPRAZOLE (PANTOPRAZOLE) [Concomitant]
  14. VFEND (VORICONAZOLE) INFUSION [Concomitant]
  15. COUMADIN (WARFARIN SODIUM) [Concomitant]
  16. NORVASC (AMLODIPINE) [Concomitant]
  17. DIOVAN (VALSARTAN) [Concomitant]
  18. METOPROLOL (METOPROLOL) [Concomitant]
  19. MAGNESIUM OXIDE (MAGNESIUM OXIDE) [Concomitant]
  20. OXYCONTIN (OXYCODONE HYDROCHLORIDE) [Concomitant]
  21. FORTEO (TERIPARATIDE) [Concomitant]
  22. AMBIEN (ZOLPIDEM TARTRATE) [Concomitant]
  23. EXCEDRIN EXTRA STRENGTH (THOMAPYRIN N) [Concomitant]
  24. EXFORGE (AMLODIPINE W/VALSARTAN) [Concomitant]
  25. ARAVA (LEFLUNOMIDE) [Concomitant]
  26. FOLIC ACID (FOLIC ACID) [Concomitant]
  27. SPIRONOLACTONE (SPIRONOLACTONE) [Concomitant]

REACTIONS (9)
  - Respiratory distress [None]
  - Pulmonary embolism [None]
  - Infusion site swelling [None]
  - Nausea [None]
  - Malaise [None]
  - Diarrhoea [None]
  - Lower respiratory tract infection fungal [None]
  - Influenza like illness [None]
  - Infusion site reaction [None]
